APPROVED DRUG PRODUCT: PREVIFEM
Active Ingredient: ETHINYL ESTRADIOL; NORGESTIMATE
Strength: 0.035MG;0.25MG
Dosage Form/Route: TABLET;ORAL-28
Application: A076334 | Product #001 | TE Code: AB
Applicant: PH HEALTH LTD
Approved: Jan 9, 2004 | RLD: No | RS: No | Type: RX